FAERS Safety Report 19048720 (Version 1)
Quarter: 2021Q1

REPORT INFORMATION
  Report Type: Spontaneous
  Country: DE (occurrence: DE)
  Receive Date: 20210323
  Receipt Date: 20210323
  Transmission Date: 20210420
  Serious: Yes (Hospitalization)
  Sender: FDA-Public Use
  Company Number: DE-GILEAD-2021-0522357

PATIENT
  Age: 79 Year
  Sex: Female
  Weight: 64 kg

DRUGS (11)
  1. ATORVASTATIN [Concomitant]
     Active Substance: ATORVASTATIN
     Dosage: 2?0?0?0
  2. BISOPROLOL [Concomitant]
     Active Substance: BISOPROLOL
     Dosage: 1?0?0?0
  3. TELMISARTAN. [Concomitant]
     Active Substance: TELMISARTAN
     Dosage: 1?0?0?0
  4. AMLODIPINE [Concomitant]
     Active Substance: AMLODIPINE BESYLATE
     Dosage: 0?0?1?0
  5. TORASEMIDE [Concomitant]
     Active Substance: TORSEMIDE
     Dosage: 1?1?0?0
  6. PANTOPRAZOLE [Concomitant]
     Active Substance: PANTOPRAZOLE
     Dosage: 1?0?1?0
  7. ISOSORBIDE DINITRATE. [Concomitant]
     Active Substance: ISOSORBIDE DINITRATE
     Dosage: 1?0?0?0
  8. RANEXA [Suspect]
     Active Substance: RANOLAZINE
     Indication: PRODUCT USED FOR UNKNOWN INDICATION
     Dosage: 375 MG, BID (1?0?1?0)
     Route: 065
  9. MOLSIDOMINE [Concomitant]
     Active Substance: MOLSIDOMINE
     Dosage: 0?0?1?0
  10. COLCHICINE. [Interacting]
     Active Substance: COLCHICINE
     Indication: PRODUCT USED FOR UNKNOWN INDICATION
     Dosage: 0.5 MG, QD (1?0?0?0)
     Route: 065
  11. ACETYLSALICYLIC ACID [Concomitant]
     Active Substance: ASPIRIN
     Dosage: 0?1?0?0

REACTIONS (7)
  - Labelled drug-drug interaction medication error [Unknown]
  - Vomiting [Unknown]
  - Product monitoring error [Unknown]
  - Abdominal pain upper [Unknown]
  - Weight decreased [Unknown]
  - Nausea [Unknown]
  - Diarrhoea [Unknown]
